FAERS Safety Report 4620963-9 (Version None)
Quarter: 2005Q1

REPORT INFORMATION
  Report Type: 
  Country: None (occurrence: None)
  Receive Date: 20050325
  Receipt Date: 20050316
  Transmission Date: 20050727
  Serious: Yes (Hospitalization, Other)
  Sender: FDA-Public Use
  Company Number: 2005046255

PATIENT
  Sex: Male
  Weight: 72.5755 kg

DRUGS (2)
  1. NORVASC [Suspect]
     Indication: VASCULAR OPERATION
     Dosage: 10 MG (10 MG, DAILY INTERVAL: EVERY DAY)
     Dates: start: 19930101
  2. ATORVASTATIN CALCIUM [Concomitant]

REACTIONS (4)
  - ALOPECIA [None]
  - HAIR TEXTURE ABNORMAL [None]
  - PROSTATE CANCER [None]
  - THYROID NEOPLASM [None]
